FAERS Safety Report 7968458-9 (Version None)
Quarter: 2011Q4

REPORT INFORMATION
  Report Type: 
  Country: None (occurrence: None)
  Receive Date: 20111209
  Receipt Date: 20111205
  Transmission Date: 20120403
  Serious: Yes (Death, Other)
  Sender: FDA-Public Use
  Company Number: US-ELI_LILLY_AND_COMPANY-US201112001730

PATIENT

DRUGS (2)
  1. GEMCITABINE HYDROCHLORIDE [Suspect]
     Indication: PANCREATIC CARCINOMA METASTATIC
     Dosage: 1000 MG/M2, ON DAYS 1, 8, AND 15 EVERY 28 DAYS
     Route: 042
  2. PACLITAXEL [Concomitant]
     Indication: PANCREATIC CARCINOMA METASTATIC
     Dosage: 150 MG/M2, UNKNOWN

REACTIONS (2)
  - INFECTION [None]
  - NEUTROPENIA [None]
